FAERS Safety Report 10025992 (Version 2)
Quarter: 2014Q2

REPORT INFORMATION
  Report Type: Spontaneous
  Country: US (occurrence: US)
  Receive Date: 20140320
  Receipt Date: 20140415
  Transmission Date: 20141212
  Serious: No
  Sender: FDA-Public Use
  Company Number: US-009507513-1403USA009832

PATIENT
  Age: 58 Year
  Sex: Male

DRUGS (11)
  1. PEGINTRON [Suspect]
     Indication: HEPATITIS C
     Dosage: REDIPEN, DOSE: 0.5 ML Q7DAYS
     Route: 058
     Dates: start: 20040903, end: 20050803
  2. REBETOL [Suspect]
     Indication: HEPATITIS C
     Dosage: UNK UNK, BID
     Route: 048
     Dates: start: 20040903, end: 20050803
  3. REBETOL [Suspect]
     Dosage: 600 MG, DAILY
     Route: 048
  4. SOVALDI [Concomitant]
     Dosage: DAILY
  5. MECLIZINE [Concomitant]
     Dosage: UNK, TID
  6. METFORMIN [Concomitant]
  7. JANUVIA [Concomitant]
  8. DIOVAN [Concomitant]
  9. LIVALO [Concomitant]
  10. GLIMEPIRIDE [Concomitant]
  11. NEXIUM [Concomitant]

REACTIONS (8)
  - Bone pain [Unknown]
  - Anaemia [Unknown]
  - Fatigue [Unknown]
  - Haemoglobin decreased [Unknown]
  - Vertigo [Unknown]
  - Nausea [Unknown]
  - Headache [Unknown]
  - Insomnia [Unknown]
